FAERS Safety Report 5138695-X (Version None)
Quarter: 2006Q4

REPORT INFORMATION
  Report Type: 
  Country: None (occurrence: None)
  Receive Date: 20061024
  Receipt Date: 20061012
  Transmission Date: 20070319
  Serious: Yes (Death, Other)
  Sender: FDA-Public Use
  Company Number: HQWYE046313OCT06

PATIENT
  Age: 46 Year
  Sex: Male
  Weight: 217.92 kg

DRUGS (4)
  1. TYGACIL [Suspect]
     Dosage: 100 MG (ONE DOSE), INTRAVENOUS
     Route: 042
     Dates: start: 20061011, end: 20061011
  2. LEVOPHED [Concomitant]
  3. CIPRO [Concomitant]
  4. CEFEPIME [Concomitant]

REACTIONS (2)
  - BODY TEMPERATURE INCREASED [None]
  - THERAPY NON-RESPONDER [None]
